FAERS Safety Report 5034934-4 (Version None)
Quarter: 2006Q2

REPORT INFORMATION
  Report Type: 
  Country: None (occurrence: None)
  Receive Date: 20060519
  Receipt Date: 20050908
  Transmission Date: 20061013
  Serious: Yes (Hospitalization)
  Sender: FDA-Public Use
  Company Number: 2006PL000014

PATIENT
  Age: 45 Year
  Sex: Female

DRUGS (4)
  1. IMURAN [Suspect]
     Indication: RHEUMATOID ARTHRITIS
     Dosage: 25 MG;X1;PO
     Route: 048
     Dates: start: 20020101, end: 20020101
  2. PRENDISONE [Concomitant]
  3. MOBIC [Concomitant]
  4. METHOTREXATE [Concomitant]

REACTIONS (1)
  - VOMITING [None]
